FAERS Safety Report 19945685 (Version 2)
Quarter: 2021Q4

REPORT INFORMATION
  Report Type: Other
  Country: CA (occurrence: CA)
  Receive Date: 20211012
  Receipt Date: 20211014
  Transmission Date: 20220303
  Serious: Yes (Hospitalization)
  Sender: FDA-Public Use
  Company Number: CA-PFIZER INC-202101288086

PATIENT
  Age: 83 Year
  Sex: Female

DRUGS (8)
  1. RIFABUTIN [Interacting]
     Active Substance: RIFABUTIN
     Indication: Pneumonia pseudomonal
     Route: 065
  2. RIFABUTIN [Interacting]
     Active Substance: RIFABUTIN
     Indication: Mycobacterium avium complex infection
     Dosage: 150 MG, 1X/DAY
     Route: 065
  3. CLARITHROMYCIN CITRATE [Interacting]
     Active Substance: CLARITHROMYCIN CITRATE
     Indication: Pneumonia pseudomonal
     Route: 065
  4. CLARITHROMYCIN CITRATE [Interacting]
     Active Substance: CLARITHROMYCIN CITRATE
     Indication: Mycobacterium avium complex infection
     Dosage: 250 MG, 1X/DAY
     Route: 065
  5. RIFAMPIN [Interacting]
     Active Substance: RIFAMPIN
     Indication: Pneumonia pseudomonal
     Dosage: 600 MG, 1X/DAY
     Route: 048
  6. RIFAMPIN [Interacting]
     Active Substance: RIFAMPIN
     Indication: Mycobacterium avium complex infection
     Dosage: UNK
     Route: 065
  7. WARFARIN [Interacting]
     Active Substance: WARFARIN
     Indication: Mitral valve replacement
     Dosage: UNK
     Route: 065
  8. WARFARIN [Interacting]
     Active Substance: WARFARIN
     Indication: Aortic valve replacement
     Dosage: UNK
     Route: 048

REACTIONS (3)
  - Anticoagulation drug level decreased [Recovered/Resolved]
  - Drug interaction [Recovered/Resolved]
  - Labelled drug-drug interaction medication error [Recovered/Resolved]
